FAERS Safety Report 9403481 (Version 2)
Quarter: 2013Q3

REPORT INFORMATION
  Report Type: Report from Study
  Country: FR (occurrence: FR)
  Receive Date: 20130716
  Receipt Date: 20130822
  Transmission Date: 20140515
  Serious: Yes (Death, Life-Threatening, Hospitalization, Other)
  Sender: FDA-Public Use
  Company Number: FR-EXELIXIS-XL18413002623

PATIENT
  Age: 69 Year
  Sex: Male

DRUGS (11)
  1. XL184 [Suspect]
     Indication: PROSTATE CANCER
     Dosage: 60 MG, QD
     Route: 048
     Dates: start: 20130311, end: 20130317
  2. XL184 [Suspect]
     Dosage: 60 MG, QD
     Route: 048
     Dates: start: 20130404, end: 20130415
  3. XL184 [Suspect]
     Indication: PROSTATE CANCER
     Dosage: 5 MG, BID
     Route: 048
     Dates: start: 20130311, end: 20130317
  4. XL184 [Suspect]
     Dosage: 5 MG, BID
     Route: 048
     Dates: start: 20130404, end: 20130416
  5. COOLMETEC [Concomitant]
  6. MEDIATENSYL [Concomitant]
  7. SKENAN [Concomitant]
  8. ACTISKENAN [Concomitant]
  9. MEDROL [Concomitant]
  10. RANITIDINE [Concomitant]
  11. FORLAX [Concomitant]

REACTIONS (5)
  - Death [Fatal]
  - Lung infection [Not Recovered/Not Resolved]
  - Thrombocytopenia [Not Recovered/Not Resolved]
  - Neutropenia [Recovered/Resolved]
  - Respiratory failure [Not Recovered/Not Resolved]
